FAERS Safety Report 12510853 (Version 4)
Quarter: 2016Q4

REPORT INFORMATION
  Report Type: Spontaneous
  Country: JP (occurrence: JP)
  Receive Date: 20160629
  Receipt Date: 20161027
  Transmission Date: 20170207
  Serious: Yes (Other)
  Sender: FDA-Public Use
  Company Number: JP-DSJP-DSJ-2016-121174

PATIENT
  Age: 88 Year
  Sex: Male
  Weight: 57 kg

DRUGS (6)
  1. MICARDIS [Concomitant]
     Active Substance: TELMISARTAN
     Indication: HYPERTENSION
     Dosage: 40 MG, QD
     Route: 048
  2. KARY UNI                           /00528801/ [Concomitant]
     Active Substance: PIRENOXINE
     Indication: CATARACT
     Dosage: UNK, TID
     Route: 047
  3. LIXIANA TABLETS 30MG [Suspect]
     Active Substance: EDOXABAN TOSILATE MONOHYDRATE
     Dosage: 30MG/DAY
     Route: 048
     Dates: start: 20160624
  4. LIXIANA TABLETS 30MG [Suspect]
     Active Substance: EDOXABAN TOSILATE MONOHYDRATE
     Indication: ATRIAL FIBRILLATION
     Dosage: 60 MG, QD
     Route: 048
     Dates: end: 20160615
  5. ALLOPURINOL. [Concomitant]
     Active Substance: ALLOPURINOL
     Indication: HYPERTENSION
     Dosage: 100 MG, QD
     Route: 048
  6. BETAHISTINE MESILATE [Concomitant]
     Active Substance: BETAHISTINE MESILATE
     Indication: DIZZINESS
     Dosage: 6 MG, TID
     Route: 048

REACTIONS (2)
  - Off label use [Unknown]
  - Subdural haematoma [Recovering/Resolving]

NARRATIVE: CASE EVENT DATE: 20160615
